FAERS Safety Report 24024673 (Version 5)
Quarter: 2024Q3

REPORT INFORMATION
  Report Type: Report from Study
  Country: CN (occurrence: CN)
  Receive Date: 20240628
  Receipt Date: 20240904
  Transmission Date: 20241016
  Serious: Yes (Hospitalization, Other)
  Sender: TAKEDA
  Company Number: CN-TAKEDA-2024TUS062962

PATIENT
  Age: 21 Year
  Sex: Male
  Weight: 57 kg

DRUGS (3)
  1. VEDOLIZUMAB [Suspect]
     Active Substance: VEDOLIZUMAB
     Indication: Colitis ulcerative
     Dosage: 300 MILLIGRAM
     Route: 042
     Dates: start: 20230129
  2. LEVOTHYROXINE SODIUM [Concomitant]
     Active Substance: LEVOTHYROXINE SODIUM
     Indication: Papillary thyroid cancer
     Dosage: 100 MICROGRAM, QD
     Route: 048
     Dates: start: 20230127
  3. LANSOPRAZOLE [Concomitant]
     Active Substance: LANSOPRAZOLE
     Indication: Inflammatory bowel disease
     Dosage: UNK
     Route: 048
     Dates: start: 20240518

REACTIONS (6)
  - Colitis ulcerative [Recovering/Resolving]
  - Musculoskeletal pain [Recovering/Resolving]
  - Joint swelling [Recovering/Resolving]
  - Iritis [Recovered/Resolved]
  - Pyrexia [Recovered/Resolved]
  - Cough [Recovered/Resolved]

NARRATIVE: CASE EVENT DATE: 20240313
